FAERS Safety Report 8356107-X (Version None)
Quarter: 2012Q2

REPORT INFORMATION
  Report Type: 
  Country: None (occurrence: None)
  Receive Date: 20120514
  Receipt Date: 20120502
  Transmission Date: 20120825
  Serious: Yes (Other)
  Sender: FDA-Public Use
  Company Number: CN-BAYER-2012-042792

PATIENT
  Age: 62 Year
  Sex: Female

DRUGS (5)
  1. NEXAVAR [Suspect]
     Dosage: 400 MG QD (AM DOSE) AND 400 MG QOD (PM DOSE)
     Route: 048
     Dates: start: 20100804
  2. NEXAVAR [Suspect]
     Indication: HEPATIC NEOPLASM MALIGNANT
     Dosage: 400 MG, BID
     Route: 048
     Dates: start: 20100713, end: 20100803
  3. INSULIN [Concomitant]
     Indication: BLOOD GLUCOSE ABNORMAL
     Dosage: 12 AM AND 8 UNITS PM
     Route: 058
  4. INTERFERON [Concomitant]
  5. THYMOSIN ALPHA 1 [Concomitant]

REACTIONS (13)
  - GENERAL PHYSICAL HEALTH DETERIORATION [None]
  - ALOPECIA [None]
  - SKIN EROSION [None]
  - SKIN ULCER [None]
  - ANAL ULCER [None]
  - GASTROINTESTINAL DISORDER [None]
  - FATIGUE [None]
  - MUCOSAL ULCERATION [None]
  - ERYTHEMA [None]
  - SKIN SWELLING [None]
  - BEDRIDDEN [None]
  - RASH [None]
  - PAIN [None]
